APPROVED DRUG PRODUCT: MUTAMYCIN
Active Ingredient: MITOMYCIN
Strength: 5MG/VIAL **Federal Register determination that product was not discontinued or withdrawn for safety or effectiveness reasons**
Dosage Form/Route: INJECTABLE;INJECTION
Application: N050450 | Product #001
Applicant: BRISTOL LABORATORIES INC DIV BRISTOL MYERS CO
Approved: Approved Prior to Jan 1, 1982 | RLD: Yes | RS: No | Type: DISCN